FAERS Safety Report 8256075-5 (Version None)
Quarter: 2012Q2

REPORT INFORMATION
  Report Type: 
  Country: None (occurrence: None)
  Receive Date: 20120403
  Receipt Date: 20120327
  Transmission Date: 20120825
  Serious: Yes (Other)
  Sender: FDA-Public Use
  Company Number: SE-PFIZER INC-2012078513

PATIENT
  Age: 59 Year
  Sex: Male

DRUGS (12)
  1. VORICONAZOLE [Suspect]
     Indication: CEREBRAL ASPERGILLOSIS
     Dosage: 200 MG, 2X/DAY
  2. VORICONAZOLE [Suspect]
     Dosage: 300 MG, 2X/DAY
  3. CASPOFUNGIN [Concomitant]
  4. VORICONAZOLE [Suspect]
     Dosage: 150 MG, 2X/DAY
     Dates: end: 20091201
  5. VORICONAZOLE [Suspect]
     Dosage: 600 MG, 2X/DAY
  6. AMBISOME [Concomitant]
     Dosage: 5 MG/KG
  7. VORICONAZOLE [Suspect]
     Indication: BRONCHOPULMONARY ASPERGILLOSIS
     Dosage: 400 MG, 2X/DAY
     Route: 048
  8. METHOTREXATE [Concomitant]
  9. VORICONAZOLE [Suspect]
     Dosage: 600 + 400 MG
     Dates: start: 20100301
  10. MERCAPTOPURINE [Concomitant]
  11. VORICONAZOLE [Suspect]
     Dosage: 400 MG, 2X/DAY
     Dates: end: 20091201
  12. VORICONAZOLE [Suspect]
     Dosage: 200 MG, 2X/DAY

REACTIONS (3)
  - HALLUCINATION [None]
  - POLYNEUROPATHY [None]
  - ROSACEA [None]
